FAERS Safety Report 8356693-X (Version None)
Quarter: 2012Q2

REPORT INFORMATION
  Report Type: 
  Country: None (occurrence: None)
  Receive Date: 20120514
  Receipt Date: 20120510
  Transmission Date: 20120825
  Serious: Yes (Death, Hospitalization)
  Sender: FDA-Public Use
  Company Number: PHHY2012AR040253

PATIENT
  Age: 60 Year
  Sex: Male

DRUGS (6)
  1. RASILEZ [Suspect]
     Indication: HYPERTENSION
     Dosage: 300 MG,DAILY
     Dates: start: 20110316
  2. ATORVASTATIN CALCIUM [Concomitant]
  3. INSULIN [Concomitant]
  4. GALVUS MET [Concomitant]
  5. AMLODIPINE BESYLATE [Concomitant]
  6. LOTRIAL [Concomitant]

REACTIONS (4)
  - CARDIOGENIC SHOCK [None]
  - CORONARY ARTERY OCCLUSION [None]
  - ATRIOVENTRICULAR BLOCK FIRST DEGREE [None]
  - VENTRICULAR ARRHYTHMIA [None]
